FAERS Safety Report 8037588-8 (Version None)
Quarter: 2012Q1

REPORT INFORMATION
  Report Type: 
  Country: None (occurrence: None)
  Receive Date: 20120111
  Receipt Date: 20120104
  Transmission Date: 20120608
  Serious: Yes (Hospitalization)
  Sender: FDA-Public Use
  Company Number: US-BAYER-2011-033563

PATIENT
  Age: 22 Year
  Sex: Female
  Weight: 52 kg

DRUGS (23)
  1. CORTIFOAM [Concomitant]
     Dosage: UNK UNK, HS
     Route: 054
     Dates: start: 20081124, end: 20090216
  2. IMURAN [Concomitant]
     Dosage: 125 MG, UNK
  3. PREDNISONE TAB [Concomitant]
     Indication: CROHN'S DISEASE
     Dosage: 40 MG, UNK
     Dates: start: 20050628, end: 20110316
  4. YASMIN [Suspect]
     Indication: ACNE
     Dosage: UNK
     Dates: start: 20061001, end: 20080701
  5. DROSPIRENONE AND ETHINYL ESTRADIOL [Suspect]
     Indication: ACNE
     Dosage: UNK
     Dates: start: 20081001, end: 20090201
  6. REMICADE [Concomitant]
  7. POTASSIUM CHLORIDE [Concomitant]
     Dosage: 20 MG, UNK
  8. VITAMIN D [Concomitant]
     Dosage: 400 MG, UNK
  9. FLORAQUIN [DIIODOHYDROXYQUINOLINE] [Concomitant]
     Indication: MEDICAL DIET
     Dosage: UNK
     Dates: start: 20051110, end: 20080102
  10. SPIRONOLACTONE [Concomitant]
     Indication: CROHN'S DISEASE
     Dosage: 50 MG, UNK
     Dates: start: 20061229, end: 20100914
  11. VITAMIN C [Concomitant]
     Dosage: UNK
     Dates: start: 20050101
  12. FISH OIL [Concomitant]
  13. POLY-IRON [POLYSACCHARIDE-IRON COMPLEX] [Concomitant]
     Dosage: 150 MG, UNK
     Dates: start: 20051110, end: 20100713
  14. POTASSIUM CHLORIDE [Concomitant]
     Dosage: 20 MEQ, UNK
     Dates: start: 20040101, end: 20091221
  15. FOSAMAX [Concomitant]
     Indication: BONE LOSS
     Dosage: 70 MG, UNK
     Dates: start: 20050628, end: 20071231
  16. AZATHIOPRINE [Concomitant]
     Indication: CROHN'S DISEASE
     Dosage: 50 MG, UNK
     Dates: start: 20060223, end: 20110316
  17. YAZ [Suspect]
     Indication: ACNE
     Dosage: UNK
     Dates: start: 20061001, end: 20090101
  18. IRON [Concomitant]
  19. FOLIC ACID [Concomitant]
     Indication: CROHN'S DISEASE
     Dosage: 1 MG, UNK
     Dates: start: 20050628, end: 20110316
  20. SUMATRIPTAN [Concomitant]
     Dosage: 50 MG, UNK
     Dates: start: 20090407
  21. ALDOSTERONE ANTAGONISTS [Concomitant]
  22. ASACOL [Concomitant]
     Indication: CROHN'S DISEASE
     Dosage: 400 MG, UNK
     Dates: start: 20050219, end: 20060908
  23. HYDROCODONE BITARTRATE AND ACETAMINOPHEN [Concomitant]
     Dosage: UNK
     Dates: start: 20051103, end: 20101030

REACTIONS (7)
  - EMOTIONAL DISTRESS [None]
  - PAIN [None]
  - ANXIETY [None]
  - CEREBRAL THROMBOSIS [None]
  - TRANSVERSE SINUS THROMBOSIS [None]
  - CEREBROVASCULAR ACCIDENT [None]
  - GENERAL PHYSICAL HEALTH DETERIORATION [None]
